FAERS Safety Report 22964529 (Version 12)
Quarter: 2024Q4

REPORT INFORMATION
  Report Type: Spontaneous
  Country: US (occurrence: US)
  Receive Date: 20230921
  Receipt Date: 20241227
  Transmission Date: 20250115
  Serious: Yes (Other)
  Sender: GLAXOSMITHKLINE
  Company Number: US-GLAXOSMITHKLINE-US2023126692

PATIENT

DRUGS (9)
  1. ZEJULA [Suspect]
     Active Substance: NIRAPARIB
     Indication: Ovarian cancer
     Dosage: 200 MG, QD
     Route: 048
     Dates: start: 20230817, end: 202309
  2. ZEJULA [Suspect]
     Active Substance: NIRAPARIB
     Indication: Ovarian cancer
     Dosage: 200 MG, QD
     Route: 048
  3. ZEJULA [Suspect]
     Active Substance: NIRAPARIB
     Dosage: 100 MG, QD
     Route: 048
     Dates: start: 202308
  4. ZEJULA [Suspect]
     Active Substance: NIRAPARIB
     Dosage: 100 MG, QD
     Route: 048
     Dates: start: 20230923
  5. ZEJULA [Suspect]
     Active Substance: NIRAPARIB
     Dosage: 100 MG, QD
     Route: 048
     Dates: start: 202309
  6. ZEJULA [Suspect]
     Active Substance: NIRAPARIB
     Dosage: 100 MG, QD
     Route: 048
  7. ZEJULA [Suspect]
     Active Substance: NIRAPARIB
     Dosage: 100 MG, QD (1 DF)
     Route: 048
  8. ZEJULA [Suspect]
     Active Substance: NIRAPARIB
     Dosage: 100 MG, QD
     Route: 048
  9. ZEJULA [Suspect]
     Active Substance: NIRAPARIB
     Dosage: UNK
     Dates: start: 20241007

REACTIONS (38)
  - Neuropathy peripheral [Recovered/Resolved]
  - Rectal polypectomy [Unknown]
  - Neutropenia [Unknown]
  - Leukopenia [Unknown]
  - Full blood count abnormal [Unknown]
  - Asthenia [Unknown]
  - Middle insomnia [Unknown]
  - Malaise [Unknown]
  - Vomiting [Unknown]
  - Paraesthesia [Unknown]
  - Hypoaesthesia [Unknown]
  - Musculoskeletal stiffness [Unknown]
  - Joint stiffness [Unknown]
  - Menopausal symptoms [Unknown]
  - Hot flush [Unknown]
  - Pruritus [Unknown]
  - Oedema [Recovered/Resolved]
  - Platelet count increased [Unknown]
  - White blood cell count increased [Unknown]
  - Drug intolerance [Recovered/Resolved]
  - Adverse drug reaction [Unknown]
  - Somnolence [Unknown]
  - Stress [Unknown]
  - Gastrointestinal disorder [Unknown]
  - Platelet count decreased [Unknown]
  - Blood bilirubin increased [Recovered/Resolved]
  - Blood pressure increased [Unknown]
  - Dry mouth [Unknown]
  - Dyspepsia [Unknown]
  - Frequent bowel movements [Unknown]
  - Memory impairment [Unknown]
  - White blood cell count decreased [Unknown]
  - Neutrophil count decreased [Unknown]
  - Headache [Not Recovered/Not Resolved]
  - Irritability [Unknown]
  - Feeling abnormal [Recovered/Resolved]
  - Flatulence [Unknown]
  - Product dose omission issue [Unknown]

NARRATIVE: CASE EVENT DATE: 20231101
